FAERS Safety Report 7607524-4 (Version None)
Quarter: 2011Q3

REPORT INFORMATION
  Report Type: 
  Country: None (occurrence: None)
  Receive Date: 20110713
  Receipt Date: 20110629
  Transmission Date: 20111222
  Serious: Yes (Other)
  Sender: FDA-Public Use
  Company Number: GB-AMGEN-GBRSP2011020218

PATIENT
  Sex: Female
  Weight: 56 kg

DRUGS (10)
  1. NIFEDIPINE [Concomitant]
     Dosage: 60 MG, QD
     Route: 048
     Dates: start: 20090107
  2. PREDNISONE [Concomitant]
     Dosage: 5 MG, QD
     Route: 048
     Dates: start: 20070101
  3. ARANESP [Suspect]
     Indication: ANAEMIA
     Dosage: UNK UNK, QWK
     Route: 058
     Dates: start: 20090819, end: 20091005
  4. ARANESP [Suspect]
     Dosage: UNK UNK, QWK
     Route: 058
     Dates: start: 20091005
  5. LABETALOL HCL [Concomitant]
     Dosage: 100 MG, BID
     Route: 048
     Dates: start: 20090107
  6. INSULIN [Concomitant]
     Dosage: UNK
     Dates: start: 20090107
  7. AZATHIOPRINE [Concomitant]
     Dosage: 100 MG, QD
     Route: 048
     Dates: start: 20070101
  8. CYCLOSPORINE [Concomitant]
     Dosage: 125 MG, BID
     Route: 048
     Dates: start: 20070101
  9. FUROSEMIDE [Concomitant]
     Dosage: 40 MG, UNK
     Route: 048
     Dates: start: 20090107
  10. OMEPRAZOLE [Concomitant]
     Dosage: 20 MG, BID
     Route: 048
     Dates: start: 20090107

REACTIONS (3)
  - GESTATIONAL HYPERTENSION [None]
  - PREMATURE DELIVERY [None]
  - GESTATIONAL DIABETES [None]
